FAERS Safety Report 10023134 (Version 3)
Quarter: 2014Q2

REPORT INFORMATION
  Report Type: Spontaneous
  Country: NZ (occurrence: NZ)
  Receive Date: 20140320
  Receipt Date: 20140602
  Transmission Date: 20141212
  Serious: Yes (Other)
  Sender: FDA-Public Use
  Company Number: NZ-AMGEN-NZLSP2014018044

PATIENT
  Age: 54 Year
  Sex: Male

DRUGS (2)
  1. XGEVA [Suspect]
     Indication: BONE PAIN
     Dosage: 120 MG, Q4WK
     Route: 065
     Dates: start: 20130809
  2. XGEVA [Suspect]
     Indication: HYPERCALCAEMIA

REACTIONS (2)
  - Osteonecrosis of jaw [Unknown]
  - Gingivitis ulcerative [Unknown]
